FAERS Safety Report 15618137 (Version 1)
Quarter: 2018Q4

REPORT INFORMATION
  Report Type: Spontaneous
  Country: DE (occurrence: DE)
  Receive Date: 20181114
  Receipt Date: 20181114
  Transmission Date: 20190205
  Serious: Yes (Other)
  Sender: FDA-Public Use
  Company Number: DE-BAYER-2018-211657

PATIENT
  Sex: Male
  Weight: 87 kg

DRUGS (2)
  1. ASPIRIN PROTECT 100 MG [Suspect]
     Active Substance: ASPIRIN
     Dosage: 100 MG, QD
     Route: 048
  2. ASPIRIN_N 100 MG [Suspect]
     Active Substance: ASPIRIN
     Route: 048

REACTIONS (3)
  - Faeces hard [None]
  - Gastritis [None]
  - Rectal haemorrhage [None]
